FAERS Safety Report 5469941-0 (Version None)
Quarter: 2007Q3

REPORT INFORMATION
  Report Type: 
  Country: None (occurrence: None)
  Receive Date: 20070927
  Receipt Date: 20070924
  Transmission Date: 20080115
  Serious: Yes (Death)
  Sender: FDA-Public Use
  Company Number: IT-ASTRAZENECA-2007AC01827

PATIENT
  Age: 58 Year
  Sex: Male

DRUGS (2)
  1. MEPIVACAINE HCL [Suspect]
     Indication: EPIDURAL ANAESTHESIA
     Dosage: 8:15 AM
     Route: 008
     Dates: start: 20050301, end: 20050301
  2. FENTANEST [Concomitant]
     Indication: ANAESTHETIC PREMEDICATION
     Dosage: 8:15 AM
     Route: 030
     Dates: start: 20050301, end: 20050301

REACTIONS (3)
  - BRADYCARDIA [None]
  - COMA [None]
  - MYOCARDIAL ISCHAEMIA [None]
